FAERS Safety Report 8134875-X (Version None)
Quarter: 2012Q1

REPORT INFORMATION
  Report Type: 
  Country: None (occurrence: None)
  Receive Date: 20120214
  Receipt Date: 20120202
  Transmission Date: 20120608
  Serious: Yes (Hospitalization)
  Sender: FDA-Public Use
  Company Number: US-SANOFI-AVENTIS-2012SA007141

PATIENT
  Sex: Female

DRUGS (3)
  1. ALLEGRA-D, 24 HR [Suspect]
  2. CLARITIN [Concomitant]
  3. FEXOFENADINE [Concomitant]

REACTIONS (1)
  - ASTHMA [None]
